FAERS Safety Report 9468840 (Version 1)
Quarter: 2013Q3

REPORT INFORMATION
  Report Type: Report from Study
  Country: PL (occurrence: PL)
  Receive Date: 20130821
  Receipt Date: 20130821
  Transmission Date: 20140515
  Serious: Yes (Hospitalization, Other)
  Sender: FDA-Public Use
  Company Number: PL-ROCHE-1263936

PATIENT
  Age: 74 Year
  Sex: Female
  Weight: 70 kg

DRUGS (8)
  1. LUCENTIS [Suspect]
     Indication: DIABETIC RETINAL OEDEMA
     Dosage: DATE OF MOST RECENT DOSE: 29/APR/2013
     Route: 050
     Dates: start: 20130222
  2. LETROX [Concomitant]
     Route: 065
  3. BISOCARD [Concomitant]
     Route: 065
  4. FUROSEMIDE [Concomitant]
     Route: 065
  5. GENSULIN M30 [Concomitant]
     Route: 065
  6. POLPRAZOL [Concomitant]
     Route: 065
  7. ACARD [Concomitant]
     Route: 065
  8. ATORIS [Concomitant]
     Route: 065

REACTIONS (8)
  - Myocardial infarction [Recovered/Resolved with Sequelae]
  - Acute myocardial infarction [Unknown]
  - Acute coronary syndrome [Unknown]
  - Cardiac failure [Unknown]
  - Hypothyroidism [Unknown]
  - Blood creatinine increased [Unknown]
  - Blood urea increased [Unknown]
  - Blood pressure abnormal [Unknown]
